FAERS Safety Report 8941667 (Version 2)
Quarter: 2013Q1

REPORT INFORMATION
  Report Type: Spontaneous
  Country: IE (occurrence: IE)
  Receive Date: 20121203
  Receipt Date: 20130304
  Transmission Date: 20140127
  Serious: Yes (Other)
  Sender: FDA-Public Use
  Company Number: PHFR2012IE006238

PATIENT
  Age: 84 Year
  Sex: Female

DRUGS (5)
  1. CLOZARIL [Suspect]
     Indication: SCHIZOPHRENIA
     Dosage: 150 MG, UNK
     Route: 048
     Dates: start: 20120612
  2. CLOZARIL [Suspect]
     Dosage: 287.5 MG, UNK
     Route: 048
     Dates: start: 20121214
  3. SERTRALINE [Concomitant]
     Indication: DEPRESSION
     Dosage: 200 MG, UNK
     Route: 048
     Dates: start: 2011
  4. MEMANTINE [Concomitant]
     Indication: DEMENTIA
     Dosage: 20 MG, UNK
     Route: 048
     Dates: start: 20120607
  5. OLANZAPINE [Concomitant]
     Indication: PSYCHOTIC DISORDER
     Dosage: 5 MG, UNK
     Route: 048
     Dates: start: 2011, end: 20120619

REACTIONS (3)
  - Fungal infection [Recovered/Resolved]
  - Pneumonia [Recovered/Resolved]
  - Lower respiratory tract infection [Unknown]
